FAERS Safety Report 4371567-7 (Version None)
Quarter: 2004Q2

REPORT INFORMATION
  Report Type: 
  Country: None (occurrence: None)
  Receive Date: 20040607
  Receipt Date: 20040527
  Transmission Date: 20050107
  Serious: Yes (Other)
  Sender: FDA-Public Use
  Company Number: GB-JNJFOC-20040506655

PATIENT
  Age: 72 Year
  Sex: Female

DRUGS (1)
  1. REMICADE [Suspect]
     Indication: RHEUMATOID ARTHRITIS
     Dosage: 11TH INFUSION.
     Route: 042

REACTIONS (3)
  - DYSPEPSIA [None]
  - FEELING ABNORMAL [None]
  - FLUSHING [None]
